FAERS Safety Report 15831401 (Version 1)
Quarter: 2019Q1

REPORT INFORMATION
  Report Type: Spontaneous
  Country: US (occurrence: US)
  Receive Date: 20190115
  Receipt Date: 20190115
  Transmission Date: 20190417
  Serious: No
  Sender: FDA-Public Use
  Company Number: None

PATIENT
  Age: 26 Year
  Sex: Female

DRUGS (2)
  1. ZONISAMIDE 100MG [Concomitant]
     Active Substance: ZONISAMIDE
  2. LAMOTRIGINE. [Suspect]
     Active Substance: LAMOTRIGINE
     Route: 048
     Dates: start: 20190104, end: 20190115

REACTIONS (2)
  - Abdominal discomfort [None]
  - Migraine [None]

NARRATIVE: CASE EVENT DATE: 20190104
